FAERS Safety Report 6394689-8 (Version None)
Quarter: 2009Q4

REPORT INFORMATION
  Report Type: 
  Country: None (occurrence: None)
  Receive Date: 20091009
  Receipt Date: 20090925
  Transmission Date: 20100525
  Serious: Yes (Hospitalization)
  Sender: FDA-Public Use
  Company Number: PHHY2009CA37270

PATIENT
  Sex: Female

DRUGS (9)
  1. EXJADE [Suspect]
     Indication: MYELODYSPLASTIC SYNDROME
     Dosage: 1625 MG, UNK
     Route: 048
  2. ASPIRIN [Concomitant]
  3. BISOPROLOL FUMARATE [Concomitant]
  4. AMRIX [Concomitant]
  5. FENTANYL-100 [Concomitant]
  6. FUROSEMIDE [Concomitant]
  7. RAMIPRIL [Concomitant]
  8. WARFARIN [Concomitant]
  9. VIAGRA [Concomitant]

REACTIONS (5)
  - CHILLS [None]
  - DYSPNOEA [None]
  - ENTEROCOCCAL SEPSIS [None]
  - LUNG DISORDER [None]
  - URINARY TRACT INFECTION [None]
